FAERS Safety Report 7711612-1 (Version None)
Quarter: 2011Q3

REPORT INFORMATION
  Report Type: 
  Country: None (occurrence: None)
  Receive Date: 20110826
  Receipt Date: 20110614
  Transmission Date: 20111222
  Serious: No
  Sender: FDA-Public Use
  Company Number: US-BRISTOL-MYERS SQUIBB COMPANY-15777766

PATIENT
  Sex: Female

DRUGS (3)
  1. TRIAMTERENE AND HYDROCHLOROTHIAZIDE [Concomitant]
  2. METFORMIN HCL [Concomitant]
  3. ONGLYZA [Suspect]

REACTIONS (2)
  - HEADACHE [None]
  - OEDEMA PERIPHERAL [None]
